FAERS Safety Report 7593448-8 (Version None)
Quarter: 2011Q3

REPORT INFORMATION
  Report Type: 
  Country: None (occurrence: None)
  Receive Date: 20110706
  Receipt Date: 20110628
  Transmission Date: 20111222
  Serious: Yes (Hospitalization)
  Sender: FDA-Public Use
  Company Number: US-MERCK-1105USA01173

PATIENT
  Age: 58 Year
  Sex: Female

DRUGS (5)
  1. ACTONEL [Concomitant]
     Indication: OSTEOPENIA
     Route: 048
     Dates: start: 20030101, end: 20050101
  2. CORTICOSTEROIDS (UNSPECIFIED) [Concomitant]
     Route: 065
     Dates: start: 19950101
  3. VITAMINS (UNSPECIFIED) [Concomitant]
     Route: 065
  4. HORMONES (UNSPECIFIED) [Concomitant]
     Route: 065
     Dates: start: 20040101, end: 20060101
  5. FOSAMAX [Suspect]
     Indication: OSTEOPENIA
     Route: 048
     Dates: start: 20050101, end: 20080601

REACTIONS (8)
  - CALCIUM DEFICIENCY [None]
  - STRESS FRACTURE [None]
  - ANXIETY [None]
  - HERPES ZOSTER [None]
  - VITAMIN D DEFICIENCY [None]
  - FEMUR FRACTURE [None]
  - INTERVERTEBRAL DISC DISORDER [None]
  - DEPRESSION [None]
